FAERS Safety Report 6126365-0 (Version None)
Quarter: 2009Q1

REPORT INFORMATION
  Report Type: 
  Country: None (occurrence: None)
  Receive Date: 20090318
  Receipt Date: 20090305
  Transmission Date: 20090719
  Serious: Yes (Hospitalization)
  Sender: FDA-Public Use
  Company Number: 2009S1003873

PATIENT
  Age: 4 Year
  Sex: Female

DRUGS (5)
  1. ETOPOSIDE [Suspect]
     Indication: NEUROBLASTOMA
     Dosage: 210 MG; INTRAVENOUS INFUSION; DAILY; INTRAVENOUS
     Route: 042
     Dates: start: 20080226, end: 20080229
  2. ETOPOSIDE [Concomitant]
  3. CARBOPLATIN [Concomitant]
  4. CARBOPLATIN [Suspect]
     Indication: NEUROBLASTOMA
  5. ALKERAN [Suspect]
     Indication: NEUROBLASTOMA
     Dosage: 45 MG; INTRAVENOUS, DAILY
     Route: 042
     Dates: start: 20080226, end: 20080228

REACTIONS (9)
  - CANDIDIASIS [None]
  - FOLLICULITIS [None]
  - ORAL HERPES [None]
  - ORAL INFECTION [None]
  - PIGMENTATION DISORDER [None]
  - SKIN EROSION [None]
  - SKIN EXFOLIATION [None]
  - STOMATITIS [None]
  - TOXIC SKIN ERUPTION [None]
